FAERS Safety Report 13508609 (Version 2)
Quarter: 2017Q2

REPORT INFORMATION
  Report Type: Report from Study
  Country: DE (occurrence: DE)
  Receive Date: 20170503
  Receipt Date: 20170524
  Transmission Date: 20170830
  Serious: Yes (Other)
  Sender: FDA-Public Use
  Company Number: DE-OTSUKA-2017_009644

PATIENT
  Age: 48 Year
  Sex: Male
  Weight: 88 kg

DRUGS (15)
  1. PLACEBO [Suspect]
     Active Substance: UNSPECIFIED INGREDIENT
     Dosage: 30 MG, QD (IN EVENING, 30MGX1) (RUN-IN PHASE)
     Route: 048
     Dates: start: 20160129, end: 20160224
  2. PLACEBO [Suspect]
     Active Substance: UNSPECIFIED INGREDIENT
     Dosage: 60 MG, QD (IN MORNING, 30MGX2) (TITRATION PHASE)
     Route: 048
     Dates: start: 20160121, end: 20160124
  3. PLACEBO [Suspect]
     Active Substance: UNSPECIFIED INGREDIENT
     Dosage: 90 MG, QD (IN MORNING, 30MGX3) (RUN-IN PHASE)
     Route: 048
     Dates: start: 20160129, end: 20160224
  4. PLACEBO [Suspect]
     Active Substance: UNSPECIFIED INGREDIENT
     Dosage: 30 MG, QD (IN MORNING, 15MGX2) (TITRATION PHASE)
     Route: 048
     Dates: start: 20160113, end: 20160116
  5. PLACEBO [Suspect]
     Active Substance: UNSPECIFIED INGREDIENT
     Dosage: 45 MG, QD (IN MORNING, 15MGX3) (TITRATION PHASE)
     Route: 048
     Dates: start: 20160117, end: 20160120
  6. RAMIPRIL. [Concomitant]
     Active Substance: RAMIPRIL
     Indication: HYPERTENSION
     Dosage: 10 MG, QD (1-0-0)
     Route: 048
     Dates: start: 201510
  7. PLACEBO [Suspect]
     Active Substance: UNSPECIFIED INGREDIENT
     Dosage: 30 MG, QD (IN EVENING, 30MGX1) (TITRATION PHASE)
     Route: 048
     Dates: start: 20160121, end: 20160124
  8. PLACEBO [Suspect]
     Active Substance: UNSPECIFIED INGREDIENT
     Indication: CONGENITAL CYSTIC KIDNEY DISEASE
     Dosage: 60 MG, QD (IN MORNING, 30MGX2) (RANDAMIZATION PHASE)
     Route: 048
     Dates: start: 20160225, end: 20160526
  9. PLACEBO [Suspect]
     Active Substance: UNSPECIFIED INGREDIENT
     Dosage: 30 MG, QD (IN EVENING, 30MGX1) (RANDAMIZATION PHASE)
     Route: 048
     Dates: start: 20160225, end: 20160526
  10. PLACEBO [Suspect]
     Active Substance: UNSPECIFIED INGREDIENT
     Dosage: PLACEBO, (IN EVENING, RUN-IN PHASE)
     Route: 048
     Dates: start: 20151222, end: 20160112
  11. PLACEBO [Suspect]
     Active Substance: UNSPECIFIED INGREDIENT
     Dosage: 15 MG, QD (IN EVENING, 15MGX1) (TITRATION PHASE)
     Route: 048
     Dates: start: 20160117, end: 20160120
  12. PLACEBO [Suspect]
     Active Substance: UNSPECIFIED INGREDIENT
     Dosage: 90 MG, QD (IN MORNING, 30MGX3) (TITRATION PHASE)
     Route: 048
     Dates: start: 20160125, end: 20160128
  13. PLACEBO [Suspect]
     Active Substance: UNSPECIFIED INGREDIENT
     Dosage: 15 MG, QD (IN EVENING, 15MGX1) (TITRATION PHASE)
     Route: 048
     Dates: start: 20160113, end: 20160116
  14. PLACEBO [Suspect]
     Active Substance: UNSPECIFIED INGREDIENT
     Dosage: PLACEBO, (IN MORNING, RUN-IN PHASE)
     Route: 048
     Dates: start: 20151222, end: 20160112
  15. PLACEBO [Suspect]
     Active Substance: UNSPECIFIED INGREDIENT
     Dosage: 30 MG, QD (IN EVENING, 30MGX1) (TITRATION PHASE)
     Route: 048
     Dates: start: 20160125, end: 20160128

REACTIONS (1)
  - Aspartate aminotransferase increased [Recovered/Resolved]

NARRATIVE: CASE EVENT DATE: 20160523
